FAERS Safety Report 8365678-9 (Version None)
Quarter: 2012Q2

REPORT INFORMATION
  Report Type: 
  Country: None (occurrence: None)
  Receive Date: 20120516
  Receipt Date: 20120501
  Transmission Date: 20120825
  Serious: Yes (Hospitalization)
  Sender: FDA-Public Use
  Company Number: CA-SPECTRUM PHARMACEUTICALS, INC.-12-Z-CA-00077

PATIENT

DRUGS (1)
  1. ZEVALIN [Suspect]
     Indication: FOLLICLE CENTRE LYMPHOMA, FOLLICULAR GRADE I, II, III
     Dosage: UNK
     Route: 065
     Dates: start: 20120412, end: 20120412

REACTIONS (1)
  - VENTRICULAR HYPOKINESIA [None]
